FAERS Safety Report 5178060-2 (Version None)
Quarter: 2006Q4

REPORT INFORMATION
  Report Type: 
  Country: None (occurrence: None)
  Receive Date: 20061208
  Receipt Date: 20061109
  Transmission Date: 20070319
  Serious: Yes (Hospitalization, Other)
  Sender: FDA-Public Use
  Company Number: 2006045290

PATIENT
  Age: 53 Year
  Sex: Male
  Weight: 74.8435 kg

DRUGS (3)
  1. BEXTRA [Suspect]
     Indication: INFLAMMATION
     Dosage: 20 MG (20 MG, 1 IN 1 D)
     Dates: start: 20030801
  2. BEXTRA [Suspect]
     Indication: PAIN
     Dosage: 20 MG (20 MG, 1 IN 1 D)
     Dates: start: 20030801
  3. BEXTRA [Suspect]
     Indication: PAIN IN EXTREMITY
     Dosage: 20 MG (20 MG, 1 IN 1 D)
     Dates: start: 20030801

REACTIONS (1)
  - CEREBROVASCULAR ACCIDENT [None]
